FAERS Safety Report 18564127 (Version 1)
Quarter: 2020Q4

REPORT INFORMATION
  Report Type: Spontaneous
  Country: US (occurrence: US)
  Receive Date: 20201130
  Receipt Date: 20201130
  Transmission Date: 20210114
  Serious: No
  Sender: FDA-Public Use
  Company Number: None

PATIENT
  Age: 35 Year
  Sex: Female
  Weight: 78.3 kg

DRUGS (2)
  1. SPIRONOLACTONE. [Suspect]
     Active Substance: SPIRONOLACTONE
     Indication: ACNE
     Dates: start: 20191209, end: 20201126
  2. MULTI VITAMIN [Concomitant]
     Active Substance: VITAMINS

REACTIONS (3)
  - Menorrhagia [None]
  - Menstruation irregular [None]
  - Oligomenorrhoea [None]

NARRATIVE: CASE EVENT DATE: 20201121
